FAERS Safety Report 8340225-6 (Version None)
Quarter: 2012Q2

REPORT INFORMATION
  Report Type: 
  Country: None (occurrence: None)
  Receive Date: 20120502
  Receipt Date: 20120502
  Transmission Date: 20120825
  Serious: No
  Sender: FDA-Public Use
  Company Number: None

PATIENT
  Age: 57 Year
  Sex: Male

DRUGS (1)
  1. FENTANYL CITRATE [Suspect]

REACTIONS (11)
  - NAUSEA [None]
  - PRODUCT SUBSTITUTION ISSUE [None]
  - MALAISE [None]
  - HYPOPNOEA [None]
  - FEELING HOT [None]
  - DIZZINESS [None]
  - COLD SWEAT [None]
  - HEADACHE [None]
  - PRODUCT QUALITY ISSUE [None]
  - ABDOMINAL DISCOMFORT [None]
  - PRODUCT PHYSICAL ISSUE [None]
